FAERS Safety Report 12565693 (Version 1)
Quarter: 2016Q3

REPORT INFORMATION
  Report Type: Spontaneous
  Country: CH (occurrence: CH)
  Receive Date: 20160718
  Receipt Date: 20160718
  Transmission Date: 20161109
  Serious: Yes (Hospitalization)
  Sender: FDA-Public Use
  Company Number: CH-PFIZER INC-2016331906

PATIENT
  Age: 72 Year
  Sex: Male

DRUGS (12)
  1. DUODART [Suspect]
     Active Substance: DUTASTERIDE\TAMSULOSIN
     Dosage: UNK
     Dates: end: 20160611
  2. BILOL [Suspect]
     Active Substance: BISOPROLOL
     Dosage: UNK
  3. ZANIDIP [Suspect]
     Active Substance: LERCANIDIPINE HYDROCHLORIDE
     Dosage: UNK
  4. PANTOZOL [Concomitant]
     Active Substance: PANTOPRAZOLE SODIUM
     Dosage: UNK
  5. ELTROXIN [Concomitant]
     Active Substance: LEVOTHYROXINE
     Dosage: UNK
  6. TRAMAL [Interacting]
     Active Substance: TRAMADOL
     Dosage: UNK
     Dates: end: 20160617
  7. DUODART [Suspect]
     Active Substance: DUTASTERIDE\TAMSULOSIN
     Dosage: UNK
     Dates: start: 20160622
  8. CRESTOR [Concomitant]
     Active Substance: ROSUVASTATIN CALCIUM
     Dosage: UNK
  9. HALCION [Interacting]
     Active Substance: TRIAZOLAM
     Dosage: 0.25 MG, 1X/DAY
     Route: 048
     Dates: start: 20160619
  10. MIRTAZAPIN [Interacting]
     Active Substance: MIRTAZAPINE
     Dosage: UNK
  11. HALCION [Suspect]
     Active Substance: TRIAZOLAM
     Indication: SLEEP DISORDER
     Dosage: 0.5 MG, 1X/DAY
     Route: 048
     Dates: start: 2001, end: 20160616
  12. EZETROL [Concomitant]
     Active Substance: EZETIMIBE
     Dosage: UNK

REACTIONS (4)
  - Fall [Unknown]
  - Drug interaction [Unknown]
  - Syncope [Recovered/Resolved]
  - Somnolence [Unknown]

NARRATIVE: CASE EVENT DATE: 2014
